FAERS Safety Report 12270913 (Version 1)
Quarter: 2016Q2

REPORT INFORMATION
  Report Type: Spontaneous
  Country: US (occurrence: US)
  Receive Date: 20160415
  Receipt Date: 20160415
  Transmission Date: 20160815
  Serious: No
  Sender: FDA-Public Use
  Company Number: US-TEVA-645409ACC

PATIENT
  Age: 20 Year
  Sex: Female
  Weight: 62.65 kg

DRUGS (2)
  1. DEPO-PROVERA CONTRACEPTIVE INJECTION [Concomitant]
     Indication: CONTRACEPTION
     Dates: end: 20160315
  2. PLAN B ONE-STEP [Suspect]
     Active Substance: LEVONORGESTREL
     Indication: POST COITAL CONTRACEPTION

REACTIONS (1)
  - Vaginal haemorrhage [Not Recovered/Not Resolved]

NARRATIVE: CASE EVENT DATE: 20160317
